FAERS Safety Report 20058854 (Version 1)
Quarter: 2021Q4

REPORT INFORMATION
  Report Type: Report from Study
  Country: EG (occurrence: EG)
  Receive Date: 20211111
  Receipt Date: 20211111
  Transmission Date: 20220303
  Serious: Yes (Other)
  Sender: FDA-Public Use
  Company Number: EG-NOVARTISPH-NVSC2021EG254228

PATIENT
  Age: 27 Year
  Sex: Female

DRUGS (9)
  1. GILENYA [Suspect]
     Active Substance: FINGOLIMOD HYDROCHLORIDE
     Indication: Multiple sclerosis
     Dosage: 0.5 MG, QD
     Route: 048
     Dates: start: 20200617
  2. SOLU-MEDROL [Concomitant]
     Active Substance: METHYLPREDNISOLONE SODIUM SUCCINATE
     Indication: Product used for unknown indication
     Dosage: 5 DOSES
     Route: 065
  3. ARIPREX [Concomitant]
     Indication: Spondylitis
     Dosage: 10 MG, QD
     Route: 048
     Dates: start: 202011, end: 202103
  4. MYOFEN [Concomitant]
     Indication: Muscle relaxant therapy
     Dosage: UNK UNK, QD
     Route: 048
     Dates: start: 20200617
  5. FLEXOFAN [Concomitant]
     Indication: Muscle relaxant therapy
     Dosage: UNK UNK, QD
     Route: 048
     Dates: start: 20200617
  6. AMITRIPTYLINE HYDROCHLORIDE [Concomitant]
     Active Substance: AMITRIPTYLINE HYDROCHLORIDE
     Indication: Sedative therapy
     Dosage: 25 MG, QD
     Route: 048
     Dates: start: 20200617
  7. ALPRAZOLAM [Concomitant]
     Active Substance: ALPRAZOLAM
     Indication: Sedative therapy
     Dosage: 0.25 MG, QD
     Route: 065
     Dates: start: 20200617
  8. VIDROP [Concomitant]
     Indication: Hypovitaminosis
     Dosage: DROP, 1 BOTTLE PER WEEK
     Route: 048
     Dates: start: 20200617
  9. SOLUPRED [Concomitant]
     Indication: Product used for unknown indication
     Dosage: 20 MG, TID
     Route: 048
     Dates: start: 20211101

REACTIONS (8)
  - Vision blurred [Not Recovered/Not Resolved]
  - Diplopia [Not Recovered/Not Resolved]
  - Dizziness [Not Recovered/Not Resolved]
  - Ocular discomfort [Not Recovered/Not Resolved]
  - Anaemia [Not Recovered/Not Resolved]
  - Hypotension [Not Recovered/Not Resolved]
  - Multiple sclerosis [Recovered/Resolved]
  - Hypersensitivity [Recovering/Resolving]

NARRATIVE: CASE EVENT DATE: 20200617
